FAERS Safety Report 25811626 (Version 6)
Quarter: 2025Q4

REPORT INFORMATION
  Report Type: Spontaneous
  Country: AU (occurrence: AU)
  Receive Date: 20250917
  Receipt Date: 20251029
  Transmission Date: 20260117
  Serious: Yes (Hospitalization, Other)
  Sender: MYLAN
  Company Number: AU-MYLANLABS-2025M1078257

PATIENT
  Age: 61 Year
  Sex: Male

DRUGS (1)
  1. CLOZARIL [Suspect]
     Active Substance: CLOZAPINE
     Indication: Schizophrenia
     Dosage: 325 MILLIGRAM

REACTIONS (15)
  - Hospitalisation [Unknown]
  - Faecaloma [Unknown]
  - Pancreatitis chronic [Unknown]
  - Neutrophil count decreased [Recovered/Resolved]
  - Blood urea decreased [Unknown]
  - Blood calcium decreased [Unknown]
  - Blood albumin decreased [Unknown]
  - Generalised oedema [Unknown]
  - Red blood cell count decreased [Unknown]
  - Haematocrit decreased [Unknown]
  - Haemoglobin decreased [Unknown]
  - Blood alkaline phosphatase increased [Unknown]
  - Gamma-glutamyltransferase increased [Unknown]
  - White blood cell count decreased [Recovered/Resolved]
  - Pleural effusion [Unknown]

NARRATIVE: CASE EVENT DATE: 20250911
